FAERS Safety Report 9520347 (Version 2)
Quarter: 2013Q3

REPORT INFORMATION
  Report Type: Report from Study
  Country: US (occurrence: US)
  Receive Date: 20130912
  Receipt Date: 20130925
  Transmission Date: 20140515
  Serious: Yes (Other)
  Sender: FDA-Public Use
  Company Number: US-ROCHE-1273981

PATIENT
  Sex: Male
  Weight: 83 kg

DRUGS (3)
  1. RANIBIZUMAB [Suspect]
     Indication: MACULAR DEGENERATION
     Route: 050
     Dates: start: 20130403
  2. RANIBIZUMAB [Suspect]
     Indication: RETINAL VASCULAR THROMBOSIS
     Route: 050
     Dates: start: 20130506
  3. RANIBIZUMAB [Suspect]
     Route: 050
     Dates: start: 20130611

REACTIONS (1)
  - Blindness [Unknown]
